FAERS Safety Report 8064175-8 (Version None)
Quarter: 2012Q1

REPORT INFORMATION
  Report Type: 
  Country: None (occurrence: None)
  Receive Date: 20120123
  Receipt Date: 20120118
  Transmission Date: 20120608
  Serious: Yes (Hospitalization)
  Sender: FDA-Public Use
  Company Number: JP-B.I. PHARMACEUTICALS,INC./RIDGEFIELD-2012-BP-01003NB

PATIENT
  Age: 69 Year
  Sex: Male

DRUGS (4)
  1. CEVIMELINE HYDROCHLORIDE [Suspect]
     Indication: DRY MOUTH
     Dosage: 90 MG
     Route: 048
  2. PRADAXA [Suspect]
     Indication: ATRIAL FIBRILLATION
     Dosage: 220 MG
     Route: 048
     Dates: start: 20111222, end: 20120116
  3. DIGOXIN [Concomitant]
     Dosage: 0.25 MG
     Route: 048
  4. THEO-DUR [Concomitant]
     Dosage: 400 MG
     Route: 048

REACTIONS (4)
  - CHEST DISCOMFORT [None]
  - EPISTAXIS [None]
  - ABDOMINAL DISCOMFORT [None]
  - EMPHYSEMA [None]
